FAERS Safety Report 12571430 (Version 1)
Quarter: 2016Q3

REPORT INFORMATION
  Report Type: Spontaneous
  Country: US (occurrence: US)
  Receive Date: 20160719
  Receipt Date: 20160719
  Transmission Date: 20161109
  Serious: No
  Sender: FDA-Public Use
  Company Number: US-ENDO PHARMACEUTICALS INC.-2016-003144

PATIENT
  Age: 57 Year
  Sex: Female
  Weight: 59.02 kg

DRUGS (5)
  1. ZANAFLEX [Concomitant]
     Active Substance: TIZANIDINE HYDROCHLORIDE
     Indication: PRODUCT USED FOR UNKNOWN INDICATION
  2. FENTANYL. [Concomitant]
     Active Substance: FENTANYL
     Indication: PAIN
  3. FENTANYL. [Concomitant]
     Active Substance: FENTANYL
     Indication: ARTHRALGIA
  4. ALLOPURINOL TABLETS 300MG [Suspect]
     Active Substance: ALLOPURINOL
     Indication: BLOOD URIC ACID ABNORMAL
     Route: 048
     Dates: start: 20160316
  5. FENTANYL. [Concomitant]
     Active Substance: FENTANYL
     Indication: BACK PAIN

REACTIONS (4)
  - Lymphadenopathy [Not Recovered/Not Resolved]
  - Pyrexia [Not Recovered/Not Resolved]
  - Flank pain [Not Recovered/Not Resolved]
  - Dysuria [Not Recovered/Not Resolved]

NARRATIVE: CASE EVENT DATE: 201603
